FAERS Safety Report 22284294 (Version 1)
Quarter: 2023Q2

REPORT INFORMATION
  Report Type: Spontaneous
  Country: US (occurrence: None)
  Receive Date: 20230503
  Receipt Date: 20230503
  Transmission Date: 20230721
  Serious: No
  Sender: FDA-Public Use
  Company Number: None

PATIENT
  Age: 24 Year
  Sex: Male
  Weight: 70.2 kg

DRUGS (6)
  1. VYVANSE [Suspect]
     Active Substance: LISDEXAMFETAMINE DIMESYLATE
     Indication: Attention deficit hyperactivity disorder
     Dosage: 1 CAPSULE ORAL?
     Route: 048
     Dates: start: 20230201
  2. FISH OIL [Concomitant]
     Active Substance: FISH OIL
  3. Allegra(Generic) [Concomitant]
  4. Flonaise Sensimist [Concomitant]
  5. MAGNESIUM L-THREONATE [Concomitant]
  6. Men^s One-A-Day [Concomitant]

REACTIONS (3)
  - Therapeutic product effect decreased [None]
  - Product physical issue [None]
  - Product measured potency issue [None]

NARRATIVE: CASE EVENT DATE: 20230228
